FAERS Safety Report 21349322 (Version 1)
Quarter: 2022Q3

REPORT INFORMATION
  Report Type: Spontaneous
  Country: US (occurrence: US)
  Receive Date: 20220919
  Receipt Date: 20220919
  Transmission Date: 20221026
  Serious: Yes (Other)
  Sender: FDA-Public Use
  Company Number: US-35507-2022-10511

PATIENT
  Sex: Female

DRUGS (2)
  1. SERTRALINE HYDROCHLORIDE [Suspect]
     Active Substance: SERTRALINE HYDROCHLORIDE
     Indication: Product used for unknown indication
     Dosage: 100 MILLIGRAM, BID
     Route: 065
  2. SERTRALINE HYDROCHLORIDE [Suspect]
     Active Substance: SERTRALINE HYDROCHLORIDE
     Dosage: 100 MILLIGRAM, BID, PATIENT HAS BEEN MAINTAINED ON SERTRALINE 200MG DAILY FOR MORE THAN 2 YEARS
     Route: 065

REACTIONS (7)
  - Salivary hypersecretion [Unknown]
  - Dysphagia [Unknown]
  - Urticaria [Unknown]
  - Swollen tongue [Unknown]
  - Hypersensitivity [Unknown]
  - Product substitution issue [Unknown]
  - Product quality issue [Unknown]

NARRATIVE: CASE EVENT DATE: 20220724
